FAERS Safety Report 24240144 (Version 1)
Quarter: 2024Q3

REPORT INFORMATION
  Report Type: Spontaneous
  Country: US (occurrence: US)
  Receive Date: 20240822
  Receipt Date: 20240822
  Transmission Date: 20241016
  Serious: Yes (Hospitalization)
  Sender: AMGEN
  Company Number: US-AMGEN-USASP2024165662

PATIENT
  Sex: Male

DRUGS (3)
  1. RAVICTI [Suspect]
     Active Substance: GLYCEROL PHENYLBUTYRATE
     Indication: Off label use
     Dosage: 6 MILLILITER, BID (TWO TIMES DAILY WITH MEALS)
     Route: 048
  2. RAVICTI [Suspect]
     Active Substance: GLYCEROL PHENYLBUTYRATE
     Indication: Hepatic cirrhosis
  3. MIRALAX [Concomitant]
     Active Substance: POLYETHYLENE GLYCOL 3350
     Dosage: 17 GRAM, BID

REACTIONS (2)
  - Unevaluable event [Unknown]
  - Off label use [Unknown]
